FAERS Safety Report 12975354 (Version 1)
Quarter: 2016Q4

REPORT INFORMATION
  Report Type: Spontaneous
  Country: BR (occurrence: BR)
  Receive Date: 20161125
  Receipt Date: 20161125
  Transmission Date: 20170207
  Serious: Yes (Other)
  Sender: FDA-Public Use
  Company Number: BR-009507513-1611BRA012292

PATIENT
  Age: 11 Year
  Sex: Female
  Weight: 52 kg

DRUGS (1)
  1. SINGULAIR [Suspect]
     Active Substance: MONTELUKAST SODIUM
     Indication: ASTHMA
     Dosage: UNK
     Route: 048
     Dates: start: 2004, end: 2014

REACTIONS (1)
  - Cochlea implant [Recovered/Resolved]

NARRATIVE: CASE EVENT DATE: 200704
